FAERS Safety Report 5536052-5 (Version None)
Quarter: 2007Q4

REPORT INFORMATION
  Report Type: 
  Country: None (occurrence: None)
  Receive Date: 20071204
  Receipt Date: 20071127
  Transmission Date: 20080405
  Serious: Yes (Hospitalization)
  Sender: FDA-Public Use
  Company Number: 2007SP023452

PATIENT
  Age: 64 Year
  Sex: Male
  Weight: 84.82 kg

DRUGS (6)
  1. TEMOZOLOMIDE [Suspect]
     Indication: GLIOBLASTOMA MULTIFORME
     Dosage: 75 MG/M2; QD; PO, 75 MG/M2; QD; PO
     Route: 048
     Dates: start: 20071022, end: 20071117
  2. TEMOZOLOMIDE [Suspect]
     Indication: GLIOBLASTOMA MULTIFORME
     Dosage: 75 MG/M2; QD; PO, 75 MG/M2; QD; PO
     Route: 048
     Dates: start: 20071120
  3. TOPROL-XL [Concomitant]
  4. PRINIVIL [Concomitant]
  5. NEXIUM [Concomitant]
  6. DECADRON [Concomitant]

REACTIONS (3)
  - CELLULITIS [None]
  - HERPES ZOSTER [None]
  - RADIATION INJURY [None]
